FAERS Safety Report 20812618 (Version 1)
Quarter: 2022Q2

REPORT INFORMATION
  Report Type: Spontaneous
  Country: HU (occurrence: HU)
  Receive Date: 20220511
  Receipt Date: 20220511
  Transmission Date: 20220721
  Serious: Yes (Other)
  Sender: FDA-Public Use
  Company Number: HU-BAUSCH-BL-2022-011404

PATIENT
  Age: 71 Year
  Sex: Female

DRUGS (11)
  1. ATROPINE [Suspect]
     Active Substance: ATROPINE
     Indication: Atrioventricular block
     Route: 065
     Dates: start: 2019
  2. ATROPINE [Suspect]
     Active Substance: ATROPINE
     Indication: Rhythm idioventricular
  3. LOSARTAN [Concomitant]
     Active Substance: LOSARTAN
     Indication: Nephropathy
  4. FUROSEMIDE [Concomitant]
     Active Substance: FUROSEMIDE
     Indication: Generalised oedema
  5. FUROSEMIDE [Concomitant]
     Active Substance: FUROSEMIDE
  6. FUROSEMIDE [Concomitant]
     Active Substance: FUROSEMIDE
     Dosage: REPEATEDLY INCREASED TO 80 MG PER DAY
     Dates: start: 202105
  7. METHYLPREDNISOLONE [Concomitant]
     Active Substance: METHYLPREDNISOLONE
     Indication: Rheumatoid arthritis
  8. METHOTREXATE [Concomitant]
     Active Substance: METHOTREXATE
     Indication: Rheumatoid arthritis
  9. APIXABAN [Concomitant]
     Active Substance: APIXABAN
     Indication: Deep vein thrombosis
  10. DICLOFENAC [Concomitant]
     Active Substance: DICLOFENAC
     Indication: Arthropathy
     Dosage: FOR LONG TIME
  11. MELOXICAM [Concomitant]
     Active Substance: MELOXICAM
     Indication: Arthropathy
     Dosage: FOR LONG TIME

REACTIONS (1)
  - Therapy partial responder [Unknown]

NARRATIVE: CASE EVENT DATE: 20190101
